FAERS Safety Report 8982956 (Version 1)
Quarter: 2012Q4

REPORT INFORMATION
  Report Type: 
  Country: US (occurrence: US)
  Receive Date: 20121224
  Receipt Date: 20121224
  Transmission Date: 20130627
  Serious: No
  Sender: FDA-Public Use
  Company Number: US-ASTRAZENECA-2012SE92286

PATIENT
  Age: 59 Year
  Sex: Male
  Weight: 76.7 kg

DRUGS (4)
  1. SYMBICORT [Suspect]
     Indication: ASTHMA
     Dosage: 160/4.5 MCG 2 TWO TIMES DAILY
     Route: 055
  2. OXYCODONE [Concomitant]
     Indication: PAIN
     Route: 048
     Dates: start: 201201
  3. OXYCONTIN [Concomitant]
     Indication: PAIN
     Route: 048
     Dates: start: 201201
  4. NEURONTIN [Concomitant]
     Indication: PAIN
     Route: 048
     Dates: start: 201201

REACTIONS (2)
  - Dyspnoea [Unknown]
  - Drug dose omission [Unknown]
